FAERS Safety Report 25754676 (Version 1)
Quarter: 2025Q3

REPORT INFORMATION
  Report Type: 
  Country: CN (occurrence: CN)
  Receive Date: 20250903
  Receipt Date: 20250903
  Transmission Date: 20251020
  Serious: Yes (Hospitalization)
  Sender: JIANGSU HANSOH PHARMACEUTICAL GROUP CO., LTD.
  Company Number: CN-Hansoh-20252190016329

PATIENT
  Age: 69 Year
  Sex: Female

DRUGS (2)
  1. PEMETREXED DISODIUM [Suspect]
     Active Substance: PEMETREXED DISODIUM
     Indication: Lung adenocarcinoma
     Dosage: 500 MG, QD
     Route: 048
     Dates: start: 20250718, end: 20250718
  2. IVONESCIMAB [Suspect]
     Active Substance: IVONESCIMAB
     Indication: Lung adenocarcinoma
     Dosage: 1000 MG, QD
     Route: 041
     Dates: start: 20250718, end: 20250718

REACTIONS (1)
  - Autoimmune lung disease [Recovering/Resolving]

NARRATIVE: CASE EVENT DATE: 20250820
